FAERS Safety Report 11965469 (Version 3)
Quarter: 2017Q1

REPORT INFORMATION
  Report Type: Spontaneous
  Country: JP (occurrence: JP)
  Receive Date: 20160127
  Receipt Date: 20170221
  Transmission Date: 20170428
  Serious: Yes (Other)
  Sender: FDA-Public Use
  Company Number: JP-SUN PHARMACEUTICAL INDUSTRIES LTD-2016R1-110246

PATIENT
  Age: 57 Year
  Sex: Female

DRUGS (2)
  1. ANASTROZOLE. [Suspect]
     Active Substance: ANASTROZOLE
     Indication: BREAST CANCER STAGE III
     Dosage: UNK
     Route: 065
  2. TAMOXIFEN [Suspect]
     Active Substance: TAMOXIFEN
     Indication: BREAST CANCER STAGE III
     Dosage: UNK
     Route: 065

REACTIONS (3)
  - Therapeutic response decreased [Recovered/Resolved]
  - Disease progression [Recovered/Resolved]
  - Condition aggravated [Recovered/Resolved]
